FAERS Safety Report 4367108-0 (Version None)
Quarter: 2004Q2

REPORT INFORMATION
  Report Type: 
  Country: None (occurrence: None)
  Receive Date: 20040528
  Receipt Date: 20040227
  Transmission Date: 20050107
  Serious: Yes (Congenital Anomaly, Other)
  Sender: FDA-Public Use
  Company Number: US-GLAXOSMITHKLINE-A0500445A

PATIENT
  Sex: Male
  Weight: 0.9 kg

DRUGS (11)
  1. COMBIVIR [Suspect]
     Indication: HIV INFECTION
     Dosage: 2TAB PER DAY
     Dates: start: 20031017
  2. LEXIVA [Suspect]
     Indication: HIV INFECTION
     Dosage: 1400MG PER DAY
     Dates: start: 20031219
  3. NORVIR [Suspect]
     Indication: HIV INFECTION
     Dosage: 200MG PER DAY
     Dates: start: 20031219
  4. ZIDOVUDINE [Suspect]
     Indication: HIV INFECTION
     Dates: start: 20040219, end: 20040220
  5. TRIMETHOPRIM [Concomitant]
  6. DILAUDID [Concomitant]
  7. CEFTRIAXONE [Concomitant]
  8. ALBUTEROL [Concomitant]
  9. DECADRON [Concomitant]
  10. ZITHROMAX [Concomitant]
  11. PROTONIX [Concomitant]

REACTIONS (19)
  - ALOPECIA [None]
  - ANOXIA [None]
  - CEREBRAL VENTRICLE DILATATION [None]
  - CONGENITAL CEREBRAL CYST [None]
  - CYST [None]
  - DEPRESSED LEVEL OF CONSCIOUSNESS [None]
  - DISTURBANCE IN SOCIAL BEHAVIOUR [None]
  - DRUG EXPOSURE DURING PREGNANCY [None]
  - EATING DISORDER [None]
  - FEEDING PROBLEM IN NEWBORN [None]
  - HAEMORRHAGE [None]
  - HYPOTONIA [None]
  - HYPOTONIA NEONATAL [None]
  - IMMATURE RESPIRATORY SYSTEM [None]
  - LUNG DISORDER [None]
  - MECONIUM STAIN [None]
  - OLIGOHYDRAMNIOS [None]
  - PERIVENTRICULAR LEUKOMALACIA [None]
  - PREMATURE BABY [None]
